FAERS Safety Report 6849418-8 (Version None)
Quarter: 2010Q3

REPORT INFORMATION
  Report Type: 
  Country: None (occurrence: None)
  Receive Date: 20100716
  Receipt Date: 20070928
  Transmission Date: 20110219
  Serious: No
  Sender: FDA-Public Use
  Company Number: US-PFIZER INC-2007082556

PATIENT
  Sex: Female
  Weight: 61.2 kg

DRUGS (1)
  1. CHANTIX [Suspect]
     Indication: SMOKING CESSATION THERAPY
     Dates: start: 20070101, end: 20070101

REACTIONS (6)
  - AUTOIMMUNE DISORDER [None]
  - FATIGUE [None]
  - GASTRIC DISORDER [None]
  - HEPATIC ENZYME INCREASED [None]
  - SWELLING [None]
  - UNEVALUABLE EVENT [None]
